FAERS Safety Report 7270155-2 (Version None)
Quarter: 2011Q1

REPORT INFORMATION
  Report Type: 
  Country: None (occurrence: None)
  Receive Date: 20110125
  Receipt Date: 20110110
  Transmission Date: 20110831
  Serious: Yes (Other)
  Sender: FDA-Public Use
  Company Number: 2010-4365

PATIENT
  Age: 18 Year
  Sex: Female

DRUGS (1)
  1. INCRELEX [Suspect]
     Indication: INSULIN RESISTANCE SYNDROME
     Dosage: 0.1 MG/KG (0.1 MG/KG,1 IN 1 D) ; 0.2 MG/KG (0.2 MG/KG,1 IN 1 D)

REACTIONS (2)
  - RETINAL NEOVASCULARISATION [None]
  - RETINOPATHY PROLIFERATIVE [None]
